FAERS Safety Report 15296586 (Version 2)
Quarter: 2018Q3

REPORT INFORMATION
  Report Type: Spontaneous
  Country: GB (occurrence: GB)
  Receive Date: 20180820
  Receipt Date: 20180820
  Transmission Date: 20181010
  Serious: Yes (Death, Hospitalization)
  Sender: FDA-Public Use
  Company Number: PHHY2018GB072493

PATIENT
  Age: 74 Year
  Sex: Female

DRUGS (3)
  1. INFLIXIMAB [Suspect]
     Active Substance: INFLIXIMAB
     Indication: CROHN^S DISEASE
     Route: 041
  2. PREDNISOLONE. [Suspect]
     Active Substance: PREDNISOLONE
     Indication: CROHN^S DISEASE
     Dosage: 40 MG, QD
     Route: 065
  3. PREDNISOLONE. [Suspect]
     Active Substance: PREDNISOLONE
     Dosage: 20 MG, QD
     Route: 065

REACTIONS (12)
  - Seizure [Unknown]
  - Chills [Fatal]
  - Pain [Fatal]
  - Posterior reversible encephalopathy syndrome [Unknown]
  - Cryptococcal fungaemia [Unknown]
  - Confusional state [Fatal]
  - Pyrexia [Fatal]
  - Headache [Fatal]
  - Meningitis cryptococcal [Fatal]
  - Renal failure [Unknown]
  - General physical health deterioration [Fatal]
  - Renal impairment [Unknown]
